FAERS Safety Report 10592605 (Version 1)
Quarter: 2014Q4

REPORT INFORMATION
  Report Type: Spontaneous
  Country: US (occurrence: US)
  Receive Date: 20141119
  Receipt Date: 20141119
  Transmission Date: 20150529
  Serious: No
  Sender: FDA-Public Use
  Company Number: US-PFIZER INC-2014317402

PATIENT
  Age: 54 Year
  Sex: Female
  Weight: 73 kg

DRUGS (4)
  1. NEURONTIN [Suspect]
     Active Substance: GABAPENTIN
     Indication: BIPOLAR DISORDER
     Dosage: 100 MG, 2X/DAY  (100 MG MORNING AND 100 MG AT DINNER)
     Dates: start: 201411
  2. NEURONTIN [Suspect]
     Active Substance: GABAPENTIN
     Indication: DEPRESSION
  3. LOSARTAN [Concomitant]
     Active Substance: LOSARTAN
     Indication: BLOOD PRESSURE INCREASED
     Dosage: 100 MG, UNK
  4. KLONOPIN [Concomitant]
     Active Substance: CLONAZEPAM
     Dosage: 1 MG, AS NEEDED

REACTIONS (2)
  - Increased appetite [Unknown]
  - Weight increased [Unknown]
